FAERS Safety Report 16931246 (Version 1)
Quarter: 2019Q4

REPORT INFORMATION
  Report Type: Spontaneous
  Country: US (occurrence: US)
  Receive Date: 20191017
  Receipt Date: 20191017
  Transmission Date: 20200122
  Serious: Yes (Other)
  Sender: FDA-Public Use
  Company Number: US-ROCHE-2433238

PATIENT
  Sex: Male
  Weight: 14 kg

DRUGS (1)
  1. ZELBORAF [Suspect]
     Active Substance: VEMURAFENIB
     Indication: LANGERHANS^ CELL HISTIOCYTOSIS
     Dosage: 120 MG IN THE MORNING AND 240 MG IN THE EVENING ;ONGOING: YES
     Route: 048
     Dates: start: 20180901

REACTIONS (5)
  - Hepatic function abnormal [Unknown]
  - Taste disorder [Unknown]
  - Intentional product use issue [Unknown]
  - Off label use [Unknown]
  - Incorrect product dosage form administered [Unknown]

NARRATIVE: CASE EVENT DATE: 201809
